FAERS Safety Report 8180896-0 (Version None)
Quarter: 2012Q1

REPORT INFORMATION
  Report Type: 
  Country: None (occurrence: None)
  Receive Date: 20120302
  Receipt Date: 20120217
  Transmission Date: 20120608
  Serious: Yes (Hospitalization)
  Sender: FDA-Public Use
  Company Number: US-WATSON-2012-03405

PATIENT
  Age: 21 Year
  Sex: Male

DRUGS (2)
  1. BACLOFEN [Suspect]
     Dosage: 20 MG BID
     Route: 048
  2. BACLOFEN [Suspect]
     Indication: SUICIDE ATTEMPT
     Dosage: 240 MG SINGLE
     Route: 048

REACTIONS (5)
  - COMA [None]
  - VOMITING [None]
  - OVERDOSE [None]
  - RESPIRATORY DEPRESSION [None]
  - SUPRAVENTRICULAR TACHYARRHYTHMIA [None]
